FAERS Safety Report 10266807 (Version 1)
Quarter: 2014Q2

REPORT INFORMATION
  Report Type: Spontaneous
  Country: US (occurrence: US)
  Receive Date: 20140630
  Receipt Date: 20140630
  Transmission Date: 20141212
  Serious: No
  Sender: FDA-Public Use
  Company Number: US-AMGEN-USASP2014047351

PATIENT
  Age: 58 Year
  Sex: Female

DRUGS (1)
  1. ENBREL [Suspect]
     Indication: RHEUMATOID ARTHRITIS
     Dosage: TWO 25 MG, QWK
     Route: 065
     Dates: start: 20040419

REACTIONS (3)
  - Skin hypertrophy [Recovered/Resolved]
  - Skin discolouration [Recovered/Resolved]
  - Injection site pain [Not Recovered/Not Resolved]
